FAERS Safety Report 7456760-9 (Version None)
Quarter: 2011Q2

REPORT INFORMATION
  Report Type: 
  Country: None (occurrence: None)
  Receive Date: 20110504
  Receipt Date: 20110421
  Transmission Date: 20111010
  Serious: Yes (Hospitalization)
  Sender: FDA-Public Use
  Company Number: HU-AMGEN-HUNSP2011020934

PATIENT
  Age: 69 Year
  Sex: Female

DRUGS (6)
  1. ENBREL [Suspect]
     Indication: PSORIASIS
     Dosage: 50 MG, WEEKLY
     Route: 058
     Dates: start: 20110401
  2. NORVASC [Concomitant]
     Dosage: UNK
  3. GLIMEPIRIDE [Concomitant]
     Dosage: UNK
  4. COAPROVEL [Concomitant]
     Dosage: UNK
  5. CLOPIDOGREL [Concomitant]
     Dosage: UNK
  6. NEBIVOLOL [Concomitant]
     Dosage: UNK

REACTIONS (1)
  - DIZZINESS [None]
